FAERS Safety Report 25452275 (Version 4)
Quarter: 2025Q3

REPORT INFORMATION
  Report Type: Report from Study
  Country: EU (occurrence: EU)
  Receive Date: 20250618
  Receipt Date: 20250902
  Transmission Date: 20251020
  Serious: Yes (Hospitalization, Other)
  Sender: MYLAN
  Company Number: EU-SANDOZ-SDZ2025DE038987

PATIENT
  Age: 18 Year
  Sex: Male

DRUGS (12)
  1. CELECOXIB [Suspect]
     Active Substance: CELECOXIB
     Indication: Psoriatic arthropathy
     Dates: start: 20230216, end: 20230926
  2. METHOTREXATE [Suspect]
     Active Substance: METHOTREXATE
     Indication: Psoriatic arthropathy
     Dates: start: 20230617, end: 20240306
  3. ETORICOXIB [Suspect]
     Active Substance: ETORICOXIB
     Indication: Psoriatic arthropathy
     Dates: start: 20211008, end: 20221116
  4. HYRIMOZ [Suspect]
     Active Substance: ADALIMUMAB-ADAZ
     Indication: Psoriatic arthropathy
     Dates: start: 20220428, end: 20220809
  5. IBUPROFEN [Suspect]
     Active Substance: IBUPROFEN
     Indication: Psoriatic arthropathy
     Dates: start: 20221117, end: 20230215
  6. IBUPROFEN [Suspect]
     Active Substance: IBUPROFEN
     Dates: start: 20230927, end: 20240319
  7. COSENTYX [Suspect]
     Active Substance: SECUKINUMAB
     Indication: Psoriatic arthropathy
     Dates: start: 20220810, end: 20230215
  8. COSENTYX [Suspect]
     Active Substance: SECUKINUMAB
     Indication: Axial spondyloarthritis
  9. ETANERCEPT [Suspect]
     Active Substance: ETANERCEPT
     Indication: Psoriatic arthropathy
     Dates: start: 20211015, end: 20220428
  10. TREMFYA [Suspect]
     Active Substance: GUSELKUMAB
     Indication: Psoriatic arthropathy
     Dates: start: 20230216, end: 20240306
  11. DAPAGLIFLOZIN [Suspect]
     Active Substance: DAPAGLIFLOZIN
     Indication: Chronic kidney disease
     Dates: start: 20250603, end: 20250701
  12. RAMIPRIL [Concomitant]
     Active Substance: RAMIPRIL
     Indication: Alport^s syndrome

REACTIONS (10)
  - Lung adenocarcinoma stage IV [Unknown]
  - Metastases to lymph nodes [Unknown]
  - Metastases to liver [Unknown]
  - Syncope [Unknown]
  - Weight decreased [Recovered/Resolved]
  - Hyponatraemia [Recovered/Resolved]
  - Blood pressure decreased [Unknown]
  - Neurological symptom [Unknown]
  - Blood urea increased [Unknown]
  - Dizziness [Unknown]

NARRATIVE: CASE EVENT DATE: 20231215
